FAERS Safety Report 7040232-X (Version None)
Quarter: 2010Q4

REPORT INFORMATION
  Report Type: 
  Country: None (occurrence: None)
  Receive Date: 20101012
  Receipt Date: 20101001
  Transmission Date: 20110411
  Serious: Yes (Hospitalization, Other)
  Sender: FDA-Public Use
  Company Number: US-PFIZER INC-2010125990

PATIENT
  Sex: Female

DRUGS (5)
  1. ZOLOFT [Suspect]
     Indication: DEPRESSION
     Dosage: 200 MG DAILY
  2. ZOLOFT [Suspect]
     Indication: ANXIETY
  3. PREVACID [Concomitant]
     Indication: GASTROOESOPHAGEAL REFLUX DISEASE
     Dosage: UNK
  4. PRILOSEC [Concomitant]
     Indication: GASTROOESOPHAGEAL REFLUX DISEASE
     Dosage: UNK
  5. CENTRUM [Concomitant]

REACTIONS (8)
  - HEADACHE [None]
  - HYPERTHYROIDISM [None]
  - MENTAL DISORDER [None]
  - SOMNOLENCE [None]
  - STRESS [None]
  - SUICIDE ATTEMPT [None]
  - WEIGHT DECREASED [None]
  - WEIGHT INCREASED [None]
